FAERS Safety Report 8620357-5 (Version None)
Quarter: 2012Q3

REPORT INFORMATION
  Report Type: 
  Country: None (occurrence: None)
  Receive Date: 20120824
  Receipt Date: 20111010
  Transmission Date: 20120928
  Serious: Yes (Other)
  Sender: FDA-Public Use
  Company Number: US-GLAXOSMITHKLINE-A0949158A

PATIENT
  Age: 86 Year
  Sex: Female
  Weight: 45.9 kg

DRUGS (2)
  1. TYKERB [Suspect]
     Indication: PRODUCT USED FOR UNKNOWN INDICATION
     Dosage: 1000MG PER DAY
     Route: 048
     Dates: start: 20110301
  2. HERCEPTIN [Concomitant]

REACTIONS (9)
  - NAIL DISORDER [None]
  - PAIN IN EXTREMITY [None]
  - OEDEMA PERIPHERAL [None]
  - HYPOAESTHESIA [None]
  - WEIGHT DECREASED [None]
  - BREAST CANCER [None]
  - FATIGUE [None]
  - DIARRHOEA [None]
  - METASTASIS [None]
